FAERS Safety Report 18327860 (Version 1)
Quarter: 2020Q3

REPORT INFORMATION
  Report Type: Spontaneous
  Country: CA (occurrence: CA)
  Receive Date: 20200929
  Receipt Date: 20200929
  Transmission Date: 20201103
  Serious: Yes (Other)
  Sender: FDA-Public Use
  Company Number: CA-009507513-2009CAN010458

PATIENT
  Age: 65 Year
  Sex: Male

DRUGS (8)
  1. ATG (ANTITHYMOCYTE IMMUNOGLOBULIN (HORSE)) [Concomitant]
     Indication: TRANSPLANT
     Dosage: 10 MILLIGRAM/KILOGRAM
     Route: 042
  2. POSANOL [Suspect]
     Active Substance: POSACONAZOLE
     Indication: PROPHYLAXIS
     Route: 048
  3. TACROLIMUS. [Suspect]
     Active Substance: TACROLIMUS
     Indication: TRANSPLANT
     Route: 065
  4. METHYLPREDNISOLONE SODIUM SUCCINATE. [Concomitant]
     Active Substance: METHYLPREDNISOLONE SODIUM SUCCINATE
     Dosage: 25 MILLIGRAM, 1 EVERY 1 DAY
     Route: 042
  5. MYCOPHENOLATE MOFETIL. [Concomitant]
     Active Substance: MYCOPHENOLATE MOFETIL
     Indication: TRANSPLANT
     Dosage: DOSAGE FORM NOT SPECIFIED, 1 GRAM, EVERY 12 HOURS
     Route: 042
  6. TACROLIMUS. [Suspect]
     Active Substance: TACROLIMUS
     Route: 061
  7. METHYLPREDNISOLONE SODIUM SUCCINATE. [Concomitant]
     Active Substance: METHYLPREDNISOLONE SODIUM SUCCINATE
     Dosage: 250 MILLIGRAM
  8. METHYLPREDNISOLONE SODIUM SUCCINATE. [Concomitant]
     Active Substance: METHYLPREDNISOLONE SODIUM SUCCINATE
     Indication: TRANSPLANT
     Dosage: 50 MILLIGRAM, 1 EVERY 1 DAY
     Route: 042

REACTIONS (7)
  - Cytomegalovirus oesophagitis [Unknown]
  - Product use in unapproved indication [Unknown]
  - Diverticulitis [Unknown]
  - Immunosuppressant drug level increased [Unknown]
  - Immunosuppressant drug level decreased [Unknown]
  - Drug interaction [Unknown]
  - Cutaneous mucormycosis [Unknown]
